FAERS Safety Report 4316301-1 (Version None)
Quarter: 2004Q1

REPORT INFORMATION
  Report Type: 
  Country: None (occurrence: None)
  Receive Date: 20040312
  Receipt Date: 20040223
  Transmission Date: 20041129
  Serious: Yes (Other)
  Sender: FDA-Public Use
  Company Number: PHEH2004US02231

PATIENT
  Age: 63 Year
  Sex: Female

DRUGS (4)
  1. ZELNORM [Suspect]
     Indication: DIARRHOEA
     Dosage: 2 MG, BID
     Route: 048
     Dates: start: 20040201, end: 20040223
  2. AVAPRO [Concomitant]
  3. VERAPAMIL [Concomitant]
  4. NEXIUM [Concomitant]

REACTIONS (7)
  - ABDOMINAL PAIN [None]
  - BLOOD PRESSURE INCREASED [None]
  - HAEMATOCHEZIA [None]
  - HEADACHE [None]
  - HERNIA [None]
  - HYPERTENSION [None]
  - RECTAL HAEMORRHAGE [None]
